FAERS Safety Report 7897744-6 (Version None)
Quarter: 2011Q4

REPORT INFORMATION
  Report Type: 
  Country: None (occurrence: None)
  Receive Date: 20111107
  Receipt Date: 20111104
  Transmission Date: 20120403
  Serious: Yes (Hospitalization)
  Sender: FDA-Public Use
  Company Number: FR-ROCHE-730157

PATIENT
  Sex: Female
  Weight: 49 kg

DRUGS (18)
  1. AVASTIN [Suspect]
     Indication: COLORECTAL CANCER METASTATIC
     Dosage: FORM: INFUSION
     Route: 042
     Dates: start: 20090608, end: 20090921
  2. OXALIPLATIN [Suspect]
     Route: 042
     Dates: start: 20100809, end: 20100809
  3. PAROXETINE HCL [Concomitant]
  4. AVASTIN [Suspect]
     Route: 042
  5. XELODA [Suspect]
     Dosage: END DATE: 29 AUG 2010
     Route: 048
     Dates: start: 20100809, end: 20100823
  6. OXYCONTIN [Concomitant]
     Dates: start: 20100120, end: 20100808
  7. XANAX [Concomitant]
     Dosage: DRUG: XANAX 0.25, FREQUENCY: PRN
  8. IRINOTECAN HCL [Concomitant]
     Indication: COLON CANCER
     Route: 042
     Dates: start: 20090608, end: 20090921
  9. ACETAMINOPHEN [Concomitant]
     Dates: start: 20091125, end: 20100808
  10. XELODA [Suspect]
     Dosage: FREQUENCY: 14 DAYS EVERY 3 WEEKLY.
     Route: 048
  11. AVASTIN [Suspect]
     Dosage: DOSAGE FORM: 400MG; DOSAGE ALSO REPORTED AS 7.5 MG/KG
     Route: 042
     Dates: start: 20100120, end: 20100719
  12. AVASTIN [Suspect]
     Route: 042
     Dates: start: 20100809, end: 20100810
  13. XELODA [Suspect]
     Indication: COLORECTAL CANCER METASTATIC
     Dosage: FREQUENCY: 14 DAYS EVERY 3 WEEKS
     Route: 048
     Dates: start: 20100120, end: 20100518
  14. OXALIPLATIN [Suspect]
     Route: 042
  15. LEUCOVORIN CALCIUM [Concomitant]
     Indication: COLON CANCER
     Route: 042
     Dates: start: 20090608, end: 20090921
  16. IMODIUM [Concomitant]
  17. OXALIPLATIN [Suspect]
     Indication: COLORECTAL CANCER METASTATIC
     Dosage: DOSAGE FORM: 200 MG., FORM: INFUSION
     Route: 042
     Dates: start: 20100120, end: 20100518
  18. FLUOROURACIL [Concomitant]
     Indication: COLON CANCER
     Route: 042
     Dates: start: 20090608, end: 20090921

REACTIONS (1)
  - CEREBROVASCULAR ACCIDENT [None]
